FAERS Safety Report 5179145-7 (Version None)
Quarter: 2006Q4

REPORT INFORMATION
  Report Type: 
  Country: None (occurrence: None)
  Receive Date: 20061218
  Receipt Date: 20061218
  Transmission Date: 20070319
  Serious: Yes (Other)
  Sender: FDA-Public Use
  Company Number: None

PATIENT
  Sex: Female

DRUGS (1)
  1. BETAMETHASONE SODIUM PHOSPHATE AND BETAMETHASONE ACETATE [Suspect]
     Dosage: 6 MILLIGRAMS
     Dates: start: 20061207

REACTIONS (2)
  - ADVERSE EVENT [None]
  - THERAPEUTIC PRODUCT CONTAMINATION [None]
